FAERS Safety Report 7722776 (Version 2)
Quarter: 2014Q3

REPORT INFORMATION
  Report Type: Spontaneous
  Country: US (occurrence: US)
  Receive Date: 20101220
  Receipt Date: 20140807
  Transmission Date: 20150326
  Serious: Yes (Hospitalization, Other)
  Sender: FDA-Public Use
  Company Number: US-ROCHE-727235

PATIENT
  Age: 60 Year
  Sex: Male

DRUGS (5)
  1. ACCUTANE [Suspect]
     Active Substance: ISOTRETINOIN
     Route: 065
     Dates: start: 200101, end: 200102
  2. HYDROCODONE [Concomitant]
     Active Substance: HYDROCODONE
     Indication: MUSCULOSKELETAL PAIN
  3. ACCUTANE [Suspect]
     Active Substance: ISOTRETINOIN
     Indication: FOLLICULITIS
     Route: 065
  4. ACCUTANE [Suspect]
     Active Substance: ISOTRETINOIN
     Route: 065
  5. NAPROSYN [Concomitant]
     Active Substance: NAPROXEN
     Dosage: FREQUENCY: DAILY
     Route: 065
     Dates: start: 1988, end: 2000

REACTIONS (21)
  - Crohn^s disease [Unknown]
  - Inflammatory bowel disease [Recovering/Resolving]
  - Intestinal obstruction [Unknown]
  - Anaemia [Recovered/Resolved]
  - Gastrointestinal haemorrhage [Unknown]
  - Ileal ulcer [Unknown]
  - Rectal polyp [Unknown]
  - Iron deficiency anaemia [Recovered/Resolved]
  - Irritable bowel syndrome [Unknown]
  - Osteopenia [Unknown]
  - Gastrointestinal injury [Unknown]
  - Depression [Unknown]
  - Haematuria [Unknown]
  - Large intestinal stenosis [Unknown]
  - Benign prostatic hyperplasia [Unknown]
  - Diverticulum intestinal [Unknown]
  - Colitis [Recovering/Resolving]
  - Blood cholesterol increased [Unknown]
  - Intestinal perforation [Recovering/Resolving]
  - Tendonitis [Unknown]
  - Oral herpes [Unknown]

NARRATIVE: CASE EVENT DATE: 2003
